FAERS Safety Report 16286693 (Version 2)
Quarter: 2019Q3

REPORT INFORMATION
  Report Type: Spontaneous
  Country: US (occurrence: US)
  Receive Date: 20190508
  Receipt Date: 20190704
  Transmission Date: 20191004
  Serious: No
  Sender: FDA-Public Use
  Company Number: US-VIIV HEALTHCARE LIMITED-US2019076886

PATIENT
  Age: 51 Year
  Sex: Male
  Weight: 63.49 kg

DRUGS (1)
  1. JULUCA [Suspect]
     Active Substance: DOLUTEGRAVIR SODIUM\RILPIVIRINE HYDROCHLORIDE
     Indication: PRODUCT USED FOR UNKNOWN INDICATION
     Dosage: UNK
     Route: 048
     Dates: start: 201810, end: 201904

REACTIONS (4)
  - Weight increased [Recovering/Resolving]
  - Drug ineffective [Recovering/Resolving]
  - Abdominal pain [Not Recovered/Not Resolved]
  - Virologic failure [Unknown]

NARRATIVE: CASE EVENT DATE: 201812
